FAERS Safety Report 8860945 (Version 1)
Quarter: 2012Q4

REPORT INFORMATION
  Report Type: 
  Country: US (occurrence: US)
  Receive Date: 20121025
  Receipt Date: 20121025
  Transmission Date: 20130627
  Serious: No
  Sender: FDA-Public Use
  Company Number: US-AMGEN-USASP2012012626

PATIENT
  Age: 33 Year
  Sex: Female
  Weight: 71.66 kg

DRUGS (10)
  1. ENBREL [Suspect]
     Indication: PRODUCT USED FOR UNKNOWN INDICATION
     Dosage: 50 mg, qwk
     Route: 058
  2. METHOTREXATE [Concomitant]
     Dosage: 2.5 mg, UNK
  3. PREDNISONE [Concomitant]
     Dosage: 5 mg, UNK
  4. BYSTOLIC [Concomitant]
     Dosage: 2.5 mg, UNK
  5. GLUCOSAMIN PLUS CHONDROITIN [Concomitant]
     Dosage: UNK
  6. ALEVE [Concomitant]
     Dosage: 220 mg, UNK
  7. CALCIUM +D3 [Concomitant]
     Dosage: 600 mg, UNK
  8. FOLIC ACID [Concomitant]
     Dosage: UNK
  9. TYLENOL /00020001/ [Concomitant]
     Dosage: 500 mg, UNK
  10. MAGNESIUM [Concomitant]
     Dosage: 300 mg, UNK

REACTIONS (1)
  - Injection site rash [Unknown]
